FAERS Safety Report 10213896 (Version 1)
Quarter: 2014Q2

REPORT INFORMATION
  Report Type: Spontaneous
  Country: US (occurrence: None)
  Receive Date: 20140602
  Receipt Date: 20140602
  Transmission Date: 20141212
  Serious: Yes (Life-Threatening)
  Sender: FDA-Public Use
  Company Number: None

PATIENT
  Age: 47 Year
  Sex: Female
  Weight: 74.84 kg

DRUGS (1)
  1. TYSABRI [Suspect]
     Indication: RELAPSING-REMITTING MULTIPLE SCLEROSIS
     Dosage: EVERY 4-6 WEEKS INTO A VEIN
     Route: 042

REACTIONS (4)
  - Encephalitis viral [None]
  - Depression [None]
  - Amnesia [None]
  - Vision blurred [None]
